FAERS Safety Report 19286142 (Version 1)
Quarter: 2021Q2

REPORT INFORMATION
  Report Type: Spontaneous
  Country: US (occurrence: US)
  Receive Date: 20210521
  Receipt Date: 20210521
  Transmission Date: 20210717
  Serious: Yes (Other)
  Sender: FDA-Public Use
  Company Number: US-SA-2021SA165738

PATIENT
  Age: 59 Year
  Sex: Male

DRUGS (1)
  1. ZANTAC [Suspect]
     Active Substance: RANITIDINE HYDROCHLORIDE
     Dosage: 150 MG, QD
     Dates: start: 199205, end: 200304

REACTIONS (4)
  - Neoplasm malignant [Unknown]
  - Bladder cancer [Unknown]
  - Prostate cancer stage IV [Recovering/Resolving]
  - Thyroid cancer [Unknown]

NARRATIVE: CASE EVENT DATE: 20170501
